FAERS Safety Report 9282443 (Version 1)
Quarter: 2013Q2

REPORT INFORMATION
  Report Type: Spontaneous
  Country: US (occurrence: None)
  Receive Date: 20130509
  Receipt Date: 20130509
  Transmission Date: 20140414
  Serious: Yes (Hospitalization)
  Sender: FDA-Public Use
  Company Number: None

PATIENT
  Age: 59 Year
  Sex: Male
  Weight: 78.8 kg

DRUGS (1)
  1. ERBITUX (CETUXIMAB) [Suspect]

REACTIONS (12)
  - Oesophagitis [None]
  - Radiation skin injury [None]
  - Mucosal inflammation [None]
  - Dermatitis acneiform [None]
  - Superinfection [None]
  - Skin infection [None]
  - Dehydration [None]
  - Toxicity to various agents [None]
  - Oral candidiasis [None]
  - Erythema [None]
  - Skin exfoliation [None]
  - Lymphocyte count abnormal [None]
